FAERS Safety Report 8809743 (Version 1)
Quarter: 2012Q4

REPORT INFORMATION
  Report Type: 
  Country: US (occurrence: US)
  Receive Date: 20120926
  Receipt Date: 20120926
  Transmission Date: 20130627
  Serious: Yes (Death, Other)
  Sender: FDA-Public Use
  Company Number: US-ROCHE-1093350

PATIENT
  Age: 64 Year
  Sex: Male

DRUGS (8)
  1. AVASTIN [Suspect]
     Indication: COLON CANCER
     Route: 065
     Dates: start: 20040329, end: 20040713
  2. AVASTIN [Suspect]
     Route: 065
     Dates: start: 20040720, end: 20040816
  3. DECADRON [Concomitant]
  4. 5-FU [Concomitant]
  5. ZOMETA [Concomitant]
  6. CISPLATIN [Concomitant]
  7. GEMZAR [Concomitant]
     Route: 065
     Dates: start: 20040820
  8. OXALIPLATIN [Concomitant]
     Route: 065
     Dates: start: 20040102, end: 20040426

REACTIONS (8)
  - Death [Fatal]
  - Metastases to bone [Unknown]
  - Metastases to liver [Unknown]
  - Metastases to lung [Unknown]
  - Malaise [Unknown]
  - Asthenia [Unknown]
  - Pain [Unknown]
  - Back pain [Unknown]
